FAERS Safety Report 22981298 (Version 2)
Quarter: 2023Q4

REPORT INFORMATION
  Report Type: Spontaneous
  Country: DE (occurrence: DE)
  Receive Date: 20230925
  Receipt Date: 20231017
  Transmission Date: 20240109
  Serious: Yes (Other)
  Sender: FDA-Public Use
  Company Number: DE-SANDOZ-SDZ2023DE021296

PATIENT
  Sex: Female
  Weight: 87 kg

DRUGS (13)
  1. FULVESTRANT [Suspect]
     Active Substance: FULVESTRANT
     Indication: Product used for unknown indication
     Dosage: UNK
     Route: 065
     Dates: end: 20230801
  2. RIBOCICLIB [Suspect]
     Active Substance: RIBOCICLIB
     Indication: Breast cancer metastatic
     Dosage: 600 MG, QD, SCHEME 21 DAYS INTAKE, 7 DAYS BREAK
     Dates: start: 20201013, end: 20210104
  3. RIBOCICLIB [Suspect]
     Active Substance: RIBOCICLIB
     Dosage: 600 MG, QD, ) SCHEME 21 DAYS INTAKE, 7 DAYS BREAK
     Dates: start: 20210316, end: 20210412
  4. RIBOCICLIB [Suspect]
     Active Substance: RIBOCICLIB
     Dosage: 400 MG, QD, ) SCHEME 21 DAYS INTAKE, 7 DAYS BREAK
     Dates: start: 20220712, end: 20220905
  5. RIBOCICLIB [Suspect]
     Active Substance: RIBOCICLIB
     Dosage: 400 MG, QD, ) SCHEME 21 DAYS INTAKE, 7 DAYS BREAK
     Dates: start: 20210420, end: 20210614
  6. RIBOCICLIB [Suspect]
     Active Substance: RIBOCICLIB
     Dosage: 400 MG, QD, SCHEME 21 DAYS INTAKE, 7 DAYS BREAK
     Route: 065
     Dates: start: 20210721, end: 20211109
  7. RIBOCICLIB [Suspect]
     Active Substance: RIBOCICLIB
     Dosage: 400 MG, QD, SCHEME 21 DAYS INTAKE, 7 DAYS BREAK
     Dates: start: 20200908, end: 20201005
  8. RIBOCICLIB [Suspect]
     Active Substance: RIBOCICLIB
     Dosage: 400 MG, QD, SCHEME 21 DAYS INTAKE, 7 DAYS BREAK
     Dates: start: 20220913, end: 20230619
  9. RIBOCICLIB [Suspect]
     Active Substance: RIBOCICLIB
     Dosage: 400 MG, QD, ) SCHEME 21 DAYS INTAKE, 7 DAYS BREAK
     Dates: start: 20211116, end: 20220502
  10. RIBOCICLIB [Suspect]
     Active Substance: RIBOCICLIB
     Dosage: 400 MG, QD, SCHEME 21 DAYS INTAKE, 7 DAYS BREAK
     Dates: start: 20210112, end: 20210308
  11. RIBOCICLIB [Suspect]
     Active Substance: RIBOCICLIB
     Dosage: 400 MG(DAILY DOSE) SCHEME 21 DAYS INTAKE, 7 DAYS BREAK
     Dates: start: 20230627
  12. RIBOCICLIB [Suspect]
     Active Substance: RIBOCICLIB
     Dosage: 400 MG(DAILY DOSE) SCHEME 21 DAYS INTAKE, 7 DAYS BREAK
     Dates: start: 20220510, end: 20220704
  13. RIBOCICLIB [Suspect]
     Active Substance: RIBOCICLIB
     Dosage: 400 MG(DAILY DOSE) SCHEME 21 DAYS INTAKE, 7 DAYS BREAK
     Dates: start: 20210622, end: 20210719

REACTIONS (2)
  - Breast cancer metastatic [Not Recovered/Not Resolved]
  - Disease progression [Not Recovered/Not Resolved]

NARRATIVE: CASE EVENT DATE: 20230802
